FAERS Safety Report 19885452 (Version 2)
Quarter: 2021Q3

REPORT INFORMATION
  Report Type: Spontaneous
  Country: JP (occurrence: JP)
  Receive Date: 20210927
  Receipt Date: 20210929
  Transmission Date: 20211014
  Serious: Yes (Other)
  Sender: FDA-Public Use
  Company Number: JP-TAKEDA-2021TJP095120

PATIENT
  Age: 12 Year
  Weight: 21 kg

DRUGS (1)
  1. BUCCOLAM OROMUCOSAL SOLUTION 7.5MG [Suspect]
     Active Substance: MIDAZOLAM HYDROCHLORIDE
     Indication: STATUS EPILEPTICUS
     Dosage: 7.5 MILLIGRAM, SINGLE
     Route: 002

REACTIONS (1)
  - Respiratory depression [Recovered/Resolved]
